FAERS Safety Report 10066832 (Version 1)
Quarter: 2014Q2

REPORT INFORMATION
  Report Type: Spontaneous
  Country: GB (occurrence: GB)
  Receive Date: 20140408
  Receipt Date: 20140408
  Transmission Date: 20141212
  Serious: Yes (Other)
  Sender: FDA-Public Use
  Company Number: GB-MYLANLABS-2014S1007234

PATIENT
  Age: 85 Year
  Sex: Male

DRUGS (4)
  1. BISOPROLOL [Suspect]
     Indication: LEFT VENTRICULAR DYSFUNCTION
     Route: 048
     Dates: start: 20140205, end: 20140208
  2. AMLODIPINE [Concomitant]
  3. TAMSULOSIN [Concomitant]
  4. WARFARIN [Concomitant]

REACTIONS (3)
  - Urticaria [Recovering/Resolving]
  - Swelling face [Recovered/Resolved with Sequelae]
  - Lip swelling [Recovered/Resolved with Sequelae]
